FAERS Safety Report 4984722-X (Version None)
Quarter: 2006Q2

REPORT INFORMATION
  Report Type: 
  Country: None (occurrence: None)
  Receive Date: 20060427
  Receipt Date: 20050901
  Transmission Date: 20061013
  Serious: Yes (Hospitalization)
  Sender: FDA-Public Use
  Company Number: US-MERCK-0509USA00503

PATIENT
  Age: 77 Year
  Sex: Female
  Weight: 73 kg

DRUGS (5)
  1. VIOXX [Suspect]
     Indication: OSTEOARTHRITIS
     Route: 048
     Dates: start: 20010711, end: 20040416
  2. DIOVAN [Concomitant]
     Route: 065
  3. FLUOXETINE [Concomitant]
     Route: 065
  4. PREMARIN [Concomitant]
     Route: 065
  5. NEXIUM [Concomitant]
     Route: 065

REACTIONS (2)
  - INJURY [None]
  - THALAMIC INFARCTION [None]
